FAERS Safety Report 9680284 (Version 3)
Quarter: 2014Q1

REPORT INFORMATION
  Report Type: Report from Study
  Country: DE (occurrence: DE)
  Receive Date: 20131111
  Receipt Date: 20140220
  Transmission Date: 20141002
  Serious: Yes (Hospitalization)
  Sender: FDA-Public Use
  Company Number: DE-BRISTOL-MYERS SQUIBB COMPANY-19527340

PATIENT
  Age: 64 Year
  Sex: Male
  Weight: 83 kg

DRUGS (12)
  1. CETUXIMAB [Suspect]
     Indication: HEAD AND NECK CANCER
     Dosage: GP A: 6 3-WK CY CETUXIMAB 400 MG/M2 INITIAL DOSE,?GP B: 6 3-WK CY CETUXIMAB 400 MG/M2 INITIAL DOSE,
     Route: 042
     Dates: start: 20130927
  2. CISPLATIN FOR INJ [Suspect]
     Indication: HEAD AND NECK CANCER
     Dosage: G A:  CISPLATIN 40 MG/M2 (DAY 1+8)?G B: CISPLATIN 100 MG/M2 (DAY 1)
     Route: 042
     Dates: start: 20130927
  3. FLUOROURACIL [Suspect]
     Indication: HEAD AND NECK CANCER
     Dosage: G A: 5-FU 2000MG/M2 (DAY 1+8)?G B: 6-FU 1000 MG/M2/DAY (DAY 1-4).
     Route: 042
     Dates: start: 20130927
  4. PANTOZOL [Concomitant]
     Dosage: 1DF=40 UNIT NOS
  5. BELOC-ZOK MITE [Concomitant]
  6. IRON [Concomitant]
     Dosage: 1DF: 100 UNITS NOS
  7. ALDACTONE [Concomitant]
     Dosage: 1DF:50 UNITS NOS
  8. FUROSEMIDE [Concomitant]
     Dosage: 1DF; 40 UNITS NOS
  9. VITAMINS NOS [Concomitant]
  10. MINERALS [Concomitant]
  11. REKAWAN [Concomitant]
  12. BIFITERAL [Concomitant]

REACTIONS (1)
  - Atrial fibrillation [Recovered/Resolved]
